FAERS Safety Report 5389922-5 (Version None)
Quarter: 2007Q3

REPORT INFORMATION
  Report Type: 
  Country: None (occurrence: None)
  Receive Date: 20070716
  Receipt Date: 20070716
  Transmission Date: 20080115
  Serious: No
  Sender: FDA-Public Use
  Company Number: None

PATIENT
  Age: 57 Year
  Sex: Male
  Weight: 86.1834 kg

DRUGS (1)
  1. JANUVIA [Suspect]
     Dosage: 100 MG DAILY PO
     Route: 048
     Dates: start: 20070330, end: 20070713

REACTIONS (1)
  - RASH MACULAR [None]
